FAERS Safety Report 4634684-X (Version None)
Quarter: 2005Q2

REPORT INFORMATION
  Report Type: 
  Country: None (occurrence: None)
  Receive Date: 20050413
  Receipt Date: 20050413
  Transmission Date: 20051028
  Serious: Yes (Hospitalization)
  Sender: FDA-Public Use
  Company Number: None

PATIENT
  Age: 11 Year
  Sex: Male
  Weight: 84.2 kg

DRUGS (1)
  1. ABILIFY [Suspect]
     Indication: ATTENTION DEFICIT/HYPERACTIVITY DISORDER
     Dosage: 10 MG; 1/2 QAM, 1 QHS, PO
     Route: 048
     Dates: start: 20050222, end: 20050308

REACTIONS (7)
  - DROOLING [None]
  - DYSAESTHESIA [None]
  - DYSKINESIA [None]
  - HEMIPARESIS [None]
  - NECK PAIN [None]
  - SEDATION [None]
  - TREMOR [None]
